FAERS Safety Report 13381974 (Version 1)
Quarter: 2017Q1

REPORT INFORMATION
  Report Type: Report from Study
  Country: BR (occurrence: BR)
  Receive Date: 20170329
  Receipt Date: 20170329
  Transmission Date: 20170429
  Serious: Yes (Other)
  Sender: FDA-Public Use
  Company Number: PHHY2017BR042546

PATIENT
  Sex: Female
  Weight: 52 kg

DRUGS (1)
  1. FORASEQ [Suspect]
     Active Substance: BUDESONIDE\FORMOTEROL FUMARATE
     Indication: PRODUCT USED FOR UNKNOWN INDICATION
     Dosage: 1 DF (400 UG), UNK
     Route: 065

REACTIONS (4)
  - Eye pruritus [Unknown]
  - Vision blurred [Unknown]
  - Eye irritation [Unknown]
  - Glaucoma [Unknown]
